FAERS Safety Report 12253425 (Version 5)
Quarter: 2016Q2

REPORT INFORMATION
  Report Type: Report from Study
  Country: US (occurrence: US)
  Receive Date: 20160411
  Receipt Date: 20160628
  Transmission Date: 20160815
  Serious: Yes (Hospitalization, Other)
  Sender: FDA-Public Use
  Company Number: US-ACTELION-A-NJ2015-124288

PATIENT
  Age: 79 Year
  Sex: Female

DRUGS (8)
  1. TRACLEER [Suspect]
     Active Substance: BOSENTAN
     Indication: PULMONARY ARTERIAL HYPERTENSION
     Dosage: 120 MG, BID
     Route: 048
     Dates: start: 20150707
  2. TRACLEER [Suspect]
     Active Substance: BOSENTAN
     Dosage: 125 MG, BID
     Route: 048
     Dates: start: 20150701
  3. HYDROCODONE [Concomitant]
     Active Substance: HYDROCODONE
     Dosage: 7/325
     Dates: start: 20150212
  4. RIOCIGUAT [Concomitant]
     Active Substance: RIOCIGUAT
     Dosage: UNK
     Dates: start: 20160327
  5. TRACLEER [Suspect]
     Active Substance: BOSENTAN
     Dosage: 62.5 MG, BID
     Route: 048
     Dates: start: 20150707
  6. NIFEDIPINE. [Concomitant]
     Active Substance: NIFEDIPINE
  7. SILDENAFIL. [Concomitant]
     Active Substance: SILDENAFIL
  8. ASPIRIN. [Concomitant]
     Active Substance: ASPIRIN
     Dosage: 81 MG, QD

REACTIONS (18)
  - Fluid overload [Unknown]
  - Extremity necrosis [Recovered/Resolved]
  - Oedema [Unknown]
  - Pain [Recovered/Resolved]
  - Autoimmune disorder [Unknown]
  - Nausea [Not Recovered/Not Resolved]
  - Gastrooesophageal reflux disease [Unknown]
  - Pneumonia [Unknown]
  - Cardiac failure congestive [Unknown]
  - Oedema [Not Recovered/Not Resolved]
  - Oedema peripheral [Unknown]
  - Gout [Unknown]
  - Dyspnoea [Not Recovered/Not Resolved]
  - Fluid retention [Not Recovered/Not Resolved]
  - Dyspnoea exertional [Unknown]
  - Dyspepsia [Unknown]
  - Weight decreased [Unknown]
  - Nasopharyngitis [Unknown]

NARRATIVE: CASE EVENT DATE: 20150702
